FAERS Safety Report 4313621-1 (Version None)
Quarter: 2004Q1

REPORT INFORMATION
  Report Type: 
  Country: None (occurrence: None)
  Receive Date: 20040305
  Receipt Date: 20040223
  Transmission Date: 20041129
  Serious: No
  Sender: FDA-Public Use
  Company Number: 04P-163-0251362-00

PATIENT
  Age: 25 Year
  Sex: Female
  Weight: 76.2043 kg

DRUGS (1)
  1. OMNICEF [Suspect]
     Indication: UPPER RESPIRATORY TRACT INFECTION
     Dosage: 300 MG, 2 IN 1 D, PER ORAL
     Route: 048
     Dates: start: 20031110, end: 20031101

REACTIONS (3)
  - ABORTION SPONTANEOUS [None]
  - COMPLICATIONS OF MATERNAL EXPOSURE TO THERAPEUTIC DRUGS [None]
  - MATERNAL DRUGS AFFECTING FOETUS [None]
